FAERS Safety Report 22345382 (Version 7)
Quarter: 2025Q4

REPORT INFORMATION
  Report Type: Spontaneous
  Country: EU (occurrence: EU)
  Receive Date: 20230519
  Receipt Date: 20251124
  Transmission Date: 20260118
  Serious: Yes (Death, Other)
  Sender: PFIZER
  Company Number: None

PATIENT
  Age: 74 Year
  Sex: Male

DRUGS (3)
  1. SUNITINIB MALATE [Suspect]
     Active Substance: SUNITINIB MALATE
     Indication: Metastatic renal cell carcinoma
     Dosage: 50 MG, CYCLIC (50 MG/DAY ON THE STANDARD 4-WEEK ON, 2-WEEK OFF SCHEDULE (1D1))
     Dates: start: 20230121, end: 20230207
  2. ACETAMINOPHEN [Concomitant]
     Active Substance: ACETAMINOPHEN
     Dosage: UNK
  3. PANTOPRAZOLE [Concomitant]
     Active Substance: PANTOPRAZOLE
     Dosage: UNK

REACTIONS (8)
  - Malignant neoplasm progression [Fatal]
  - Metastatic renal cell carcinoma [Fatal]
  - Serous retinal detachment [Recovering/Resolving]
  - Blindness [Recovering/Resolving]
  - Subretinal fluid [Recovering/Resolving]
  - Vogt-Koyanagi-Harada disease [Recovering/Resolving]
  - Retinal oedema [Recovering/Resolving]
  - Visual acuity reduced [Recovering/Resolving]
